FAERS Safety Report 7611732-6 (Version None)
Quarter: 2011Q3

REPORT INFORMATION
  Report Type: 
  Country: None (occurrence: None)
  Receive Date: 20110706
  Receipt Date: 20110615
  Transmission Date: 20111222
  Serious: Yes (Hospitalization)
  Sender: FDA-Public Use
  Company Number: 2011PROUSA00364

PATIENT
  Age: 55 Year
  Sex: Male
  Weight: 86 kg

DRUGS (4)
  1. VICODIN [Concomitant]
  2. LUPRON [Concomitant]
  3. PROVENGE [Suspect]
     Indication: PROSTATE CANCER METASTATIC
     Dosage: 250 ML, SINGLE, INTRAVENOUS
     Route: 042
     Dates: start: 20110505, end: 20110505
  4. NORVASC [Concomitant]

REACTIONS (10)
  - DEEP VEIN THROMBOSIS [None]
  - BLOOD PRESSURE INCREASED [None]
  - BONE PAIN [None]
  - PAIN IN EXTREMITY [None]
  - HAEMOGLOBIN DECREASED [None]
  - INFLUENZA LIKE ILLNESS [None]
  - CHILLS [None]
  - THROMBOPHLEBITIS SUPERFICIAL [None]
  - HYPERHIDROSIS [None]
  - NAUSEA [None]
